FAERS Safety Report 8846236 (Version 1)
Quarter: 2012Q4

REPORT INFORMATION
  Report Type: 
  Country: GB (occurrence: GB)
  Receive Date: 20121017
  Receipt Date: 20121017
  Transmission Date: 20130627
  Serious: Yes (Other)
  Sender: FDA-Public Use
  Company Number: PHHY2012GB089927

PATIENT
  Age: 30 Year
  Sex: Female
  Weight: 59.42 kg

DRUGS (4)
  1. PROPRANOLOL [Suspect]
     Indication: HYPERTENSION
     Dosage: 40 mg,QD
     Route: 048
     Dates: start: 20120831, end: 20120925
  2. PROPRANOLOL [Suspect]
     Indication: ANXIETY
  3. MIRTAZAPINE [Concomitant]
     Indication: DEPRESSION
     Dosage: One at night
     Route: 048
     Dates: start: 20101110
  4. AMOXYCILLIN [Concomitant]
     Indication: DENTAL CARE
     Dosage: 500 mg,TID
     Route: 048
     Dates: start: 20120921

REACTIONS (2)
  - Haemorrhage subcutaneous [Recovering/Resolving]
  - Vascular rupture [Recovering/Resolving]
